FAERS Safety Report 7204252-4 (Version None)
Quarter: 2010Q4

REPORT INFORMATION
  Report Type: 
  Country: None (occurrence: None)
  Receive Date: 20101230
  Receipt Date: 20101227
  Transmission Date: 20110411
  Serious: Yes (Hospitalization)
  Sender: FDA-Public Use
  Company Number: KR-PFIZER INC-2010179583

PATIENT
  Age: 70 Year
  Sex: Male
  Weight: 63 kg

DRUGS (6)
  1. SUNITINIB MALATE [Suspect]
     Indication: METASTATIC GASTRIC CANCER
     Dosage: 25 MG, 1X/DAY, 2/1 SCHEDULE
     Route: 048
     Dates: start: 20100205, end: 20101225
  2. XELODA [Suspect]
     Indication: METASTATIC GASTRIC CANCER
     Dosage: 1300 MG, 2X/DAY, DAY 1-14
     Route: 048
     Dates: start: 20100203, end: 20101225
  3. CISPLATIN [Suspect]
     Indication: METASTATIC GASTRIC CANCER
     Dosage: 100.2 MG, EVERY 3 WEEKS
     Route: 042
     Dates: start: 20100204, end: 20101220
  4. FEROBA [Concomitant]
     Indication: ANAEMIA
     Dosage: 1 TABLET, 1X/DAY
     Route: 048
     Dates: start: 20101020, end: 20101224
  5. MEGACE [Concomitant]
     Indication: DECREASED APPETITE
     Dosage: 20 ML, 1X/DAY
     Route: 048
     Dates: start: 20100210, end: 20101224
  6. LEUCOSTIM [Concomitant]
     Indication: NEUTROPENIA
     Dosage: 300 UG, 1X/DAY
     Route: 058
     Dates: start: 20101213, end: 20101213

REACTIONS (1)
  - PNEUMONIA [None]
